FAERS Safety Report 21743797 (Version 1)
Quarter: 2022Q4

REPORT INFORMATION
  Report Type: Spontaneous
  Country: ES (occurrence: ES)
  Receive Date: 20221217
  Receipt Date: 20221217
  Transmission Date: 20230112
  Serious: Yes (Hospitalization)
  Sender: FDA-Public Use
  Company Number: ES-AMNEAL PHARMACEUTICALS-2022-AMRX-03956

PATIENT
  Age: 40 Year
  Sex: Female

DRUGS (3)
  1. LEVOTHYROXINE SODIUM [Suspect]
     Active Substance: LEVOTHYROXINE SODIUM
     Indication: Product used for unknown indication
     Dosage: }1250 MCG
     Route: 065
  2. METHOTREXATE [Suspect]
     Active Substance: METHOTREXATE
     Indication: Product used for unknown indication
     Dosage: } 40MG
     Route: 065
  3. ACETAMINOPHEN [Suspect]
     Active Substance: ACETAMINOPHEN
     Indication: Product used for unknown indication
     Dosage: }7 GRAM
     Route: 065

REACTIONS (4)
  - Suicide attempt [Unknown]
  - Bipolar I disorder [Recovering/Resolving]
  - Hyperthyroidism [Unknown]
  - Intentional overdose [Unknown]
